FAERS Safety Report 9702917 (Version 2)
Quarter: 2013Q4

REPORT INFORMATION
  Report Type: Spontaneous
  Country: US (occurrence: US)
  Receive Date: 20131121
  Receipt Date: 20131121
  Transmission Date: 20140711
  Serious: Yes (Other)
  Sender: FDA-Public Use
  Company Number: US-TEVA-440435USA

PATIENT
  Sex: Female

DRUGS (1)
  1. LISINOPRIL [Suspect]
     Indication: BLOOD PRESSURE
     Dosage: 1/2 TAB (5MG) DAILY

REACTIONS (6)
  - Pulmonary congestion [Unknown]
  - Cystitis [Unknown]
  - Bladder disorder [Unknown]
  - Abdominal pain [Unknown]
  - Dry skin [Unknown]
  - Cystitis interstitial [Unknown]
